FAERS Safety Report 8249846-2 (Version None)
Quarter: 2012Q1

REPORT INFORMATION
  Report Type: 
  Country: None (occurrence: None)
  Receive Date: 20120316
  Receipt Date: 20100329
  Transmission Date: 20120608
  Serious: Yes (Other)
  Sender: FDA-Public Use
  Company Number: PHEH2010US03305

PATIENT
  Age: 65 Year
  Sex: Male
  Weight: 102.5 kg

DRUGS (6)
  1. LISINOPRIL [Suspect]
     Indication: HYPERTENSION
     Dosage: 10 MG, DAILY, ORAL
     Route: 048
     Dates: end: 20100319
  2. PLAVIX [Concomitant]
  3. VYTORIN [Concomitant]
  4. NORVASC [Concomitant]
  5. FAMVIR (PENCICLOVIR) [Concomitant]
  6. TEKTURNA [Suspect]
     Indication: HYPERTENSION
     Dosage: 150 MG, DAILY, ORAL
     Route: 048
     Dates: start: 20100223, end: 20100319

REACTIONS (1)
  - HYPERKALAEMIA [None]
